FAERS Safety Report 14191194 (Version 1)
Quarter: 2017Q4

REPORT INFORMATION
  Report Type: Report from Study
  Country: US (occurrence: US)
  Receive Date: 20171115
  Receipt Date: 20171115
  Transmission Date: 20180321
  Serious: Yes (Death)
  Sender: FDA-Public Use
  Company Number: US-MYLANLABS-2017M1071419

PATIENT
  Age: 61 Year
  Sex: Female

DRUGS (4)
  1. BUSULFAN. [Suspect]
     Active Substance: BUSULFAN
     Dosage: AUC = 20000 MICROM X MIN 3 HOUR INFUSION GIVEN ON DAYS -6 TO -3
     Route: 041
  2. MELPHALAN. [Suspect]
     Active Substance: MELPHALAN
     Indication: PLASMA CELL MYELOMA
     Dosage: 140 MG/M2 ON DAY -2
     Route: 042
  3. BORTEZOMIB [Suspect]
     Active Substance: BORTEZOMIB
     Indication: PLASMA CELL MYELOMA
     Dosage: 1 MG/M2 X 4 DOSES ON DAYS -6, -3, +1 AND +4
     Route: 042
  4. BUSULFAN. [Suspect]
     Active Substance: BUSULFAN
     Indication: PLASMA CELL MYELOMA
     Dosage: 0.8 MG/KG (TEST DOSE GIVEN ON DAY -14 TO -11); LATER ADJUSTED TO AUC = 20000 MICROM X MIN
     Route: 041

REACTIONS (3)
  - Acute respiratory distress syndrome [Fatal]
  - Pneumonia cytomegaloviral [Fatal]
  - Respiratory failure [Fatal]
